FAERS Safety Report 7634572-0 (Version None)
Quarter: 2011Q3

REPORT INFORMATION
  Report Type: 
  Country: None (occurrence: None)
  Receive Date: 20110725
  Receipt Date: 20110719
  Transmission Date: 20111222
  Serious: Yes (Other)
  Sender: FDA-Public Use
  Company Number: US-PFIZER INC-2011153699

PATIENT
  Sex: Male
  Weight: 104.31 kg

DRUGS (5)
  1. LYRICA [Suspect]
     Indication: MUSCULOSKELETAL CHEST PAIN
     Dosage: 25 MG, 2X/DAY
     Route: 048
     Dates: start: 20110613
  2. AZOR [Concomitant]
     Indication: HYPERTENSION
     Dosage: 40 MG DAILY
     Route: 048
  3. METFORMIN [Concomitant]
     Indication: DIABETES MELLITUS
     Dosage: 500 MG, 2X/DAY
     Route: 048
  4. LYRICA [Suspect]
     Dosage: 25 MG, 3X/DAY
     Route: 048
     Dates: start: 20110601, end: 20110701
  5. SIMVASTATIN [Concomitant]
     Indication: BLOOD CHOLESTEROL ABNORMAL
     Dosage: 20 MG, DAILY
     Route: 048

REACTIONS (10)
  - COLD SWEAT [None]
  - ABNORMAL BEHAVIOUR [None]
  - CONFUSIONAL STATE [None]
  - PALPITATIONS [None]
  - DIZZINESS [None]
  - TREMOR [None]
  - DISTURBANCE IN ATTENTION [None]
  - FATIGUE [None]
  - AGITATION [None]
  - HYPERHIDROSIS [None]
